FAERS Safety Report 5162168-1 (Version None)
Quarter: 2006Q4

REPORT INFORMATION
  Report Type: 
  Country: None (occurrence: None)
  Receive Date: 20061121
  Receipt Date: 20061108
  Transmission Date: 20070319
  Serious: Yes (Disabling)
  Sender: FDA-Public Use
  Company Number: CIP06002694

PATIENT
  Age: 63 Year
  Sex: Male
  Weight: 100 kg

DRUGS (5)
  1. ACTONEL [Suspect]
     Indication: OSTEOPOROSIS
     Dosage: 35 MG ONCE WEEKLY, ORAL
     Route: 048
     Dates: start: 20060419, end: 20061108
  2. CALCIUM WITH VITAMIN D (COLECALCIFEROL CALCIUM CARBONATE) [Concomitant]
  3. CADUET (AMLODIPINE BESILATE, ATORVASTATIN CALCIUM) [Concomitant]
  4. HYDROCHLOROTHIAZIDE [Concomitant]
  5. LANZOPRAL (LANSOPRAZOLE) [Concomitant]

REACTIONS (4)
  - ARTHRALGIA [None]
  - OEDEMA PERIPHERAL [None]
  - OSTEONECROSIS [None]
  - SKIN WARM [None]
